FAERS Safety Report 7949849-9 (Version None)
Quarter: 2011Q4

REPORT INFORMATION
  Report Type: 
  Country: None (occurrence: None)
  Receive Date: 20111130
  Receipt Date: 20111118
  Transmission Date: 20120403
  Serious: Yes (Other)
  Sender: FDA-Public Use
  Company Number: US-BAYER-2011-012009

PATIENT
  Age: 21 Year
  Sex: Female
  Weight: 99.773 kg

DRUGS (3)
  1. YAZ [Suspect]
     Indication: CONTRACEPTION
     Dosage: UNK
     Dates: start: 20071001, end: 20090301
  2. NSAID'S [Concomitant]
     Dosage: UNK
     Dates: start: 20020101
  3. YAZ [Suspect]
     Indication: ACNE

REACTIONS (4)
  - PAIN [None]
  - CHOLECYSTITIS [None]
  - GALLBLADDER DISORDER [None]
  - ABDOMINAL PAIN UPPER [None]
